FAERS Safety Report 8879715 (Version 5)
Quarter: 2013Q3

REPORT INFORMATION
  Report Type: Spontaneous
  Country: US (occurrence: US)
  Receive Date: 20121031
  Receipt Date: 20130729
  Transmission Date: 20140515
  Serious: Yes (Hospitalization)
  Sender: FDA-Public Use
  Company Number: US-009507513-1210USA011116

PATIENT
  Sex: Female
  Weight: 89.8 kg

DRUGS (2)
  1. NUVARING [Suspect]
     Indication: CONTRACEPTION
     Dosage: UNK
     Route: 067
     Dates: start: 201003, end: 20101124
  2. NUVARING [Suspect]
     Dosage: UNK
     Route: 067
     Dates: start: 201110, end: 201111

REACTIONS (7)
  - Injury [Unknown]
  - Deep vein thrombosis [Unknown]
  - Depression [Not Recovered/Not Resolved]
  - Fibula fracture [Unknown]
  - Fall [Unknown]
  - Dyspnoea [Unknown]
  - Oedema peripheral [Unknown]
